FAERS Safety Report 9200627 (Version 2)
Quarter: 2013Q2

REPORT INFORMATION
  Report Type: Spontaneous
  Country: US (occurrence: US)
  Receive Date: 20130330
  Receipt Date: 20130410
  Transmission Date: 20140414
  Serious: Yes (Death, Hospitalization)
  Sender: FDA-Public Use
  Company Number: US-PFIZER INC-HQ4978431OCT2002

PATIENT
  Age: 63 Year
  Sex: Female

DRUGS (4)
  1. MOTRIN [Suspect]
     Indication: COMPLETED SUICIDE
     Dosage: UNK, UNK
     Route: 048
  2. GLUCOPHAGE [Concomitant]
     Indication: PRODUCT USED FOR UNKNOWN INDICATION
     Route: 048
  3. CLONAZEPAM [Concomitant]
     Indication: PRODUCT USED FOR UNKNOWN INDICATION
     Route: 048
  4. SYNTHROID [Concomitant]
     Indication: PRODUCT USED FOR UNKNOWN INDICATION
     Route: 065

REACTIONS (12)
  - Overdose [Fatal]
  - Suicide attempt [Fatal]
  - Tachycardia [Fatal]
  - Hypotension [Fatal]
  - Acidosis [Fatal]
  - Electrocardiogram abnormal [Fatal]
  - Hyperglycaemia [Fatal]
  - Hyperkalaemia [Fatal]
  - Blood creatinine increased [Fatal]
  - Unresponsive to stimuli [None]
  - General physical health deterioration [None]
  - Completed suicide [None]
